FAERS Safety Report 9916626 (Version 1)
Quarter: 2014Q1

REPORT INFORMATION
  Report Type: Spontaneous
  Country: US (occurrence: US)
  Receive Date: 20140221
  Receipt Date: 20140221
  Transmission Date: 20141002
  Serious: Yes (Other)
  Sender: FDA-Public Use
  Company Number: US-BAYER-2014-027032

PATIENT
  Sex: Female

DRUGS (1)
  1. MIRENA [Suspect]
     Dosage: 20 MCG/24HR, CONT
     Route: 015

REACTIONS (9)
  - Benign intracranial hypertension [None]
  - Intracranial pressure increased [None]
  - Headache [None]
  - Visual impairment [None]
  - Vision blurred [None]
  - Blindness transient [None]
  - Papilloedema [None]
  - Injury [None]
  - Pain [None]
